FAERS Safety Report 5898826-0 (Version None)
Quarter: 2008Q3

REPORT INFORMATION
  Report Type: 
  Country: None (occurrence: None)
  Receive Date: 20080925
  Receipt Date: 20080714
  Transmission Date: 20090109
  Serious: No
  Sender: FDA-Public Use
  Company Number: A0737514A

PATIENT
  Age: 45 Year
  Sex: Male

DRUGS (4)
  1. WELLBUTRIN XL [Suspect]
     Indication: DEPRESSION
     Dosage: 300MG VARIABLE DOSE
     Route: 048
  2. IMITREX [Concomitant]
  3. LORCET-HD [Concomitant]
  4. XANAX [Concomitant]

REACTIONS (3)
  - BODY TEMPERATURE INCREASED [None]
  - INSOMNIA [None]
  - MIGRAINE [None]
